FAERS Safety Report 9681394 (Version 2)
Quarter: 2013Q4

REPORT INFORMATION
  Report Type: Spontaneous
  Country: JP (occurrence: JP)
  Receive Date: 20131111
  Receipt Date: 20131206
  Transmission Date: 20140711
  Serious: Yes (Other)
  Sender: FDA-Public Use
  Company Number: JP-ELI_LILLY_AND_COMPANY-JP201311000062

PATIENT
  Sex: Female
  Weight: 2.34 kg

DRUGS (10)
  1. HUMALOG LISPRO [Suspect]
     Indication: DIABETES COMPLICATING PREGNANCY
     Dosage: UNK UNK, TID
     Route: 064
  2. HUMALOG LISPRO [Suspect]
     Indication: DIABETES COMPLICATING PREGNANCY
     Dosage: UNK UNK, TID
     Route: 064
  3. HUMALOG LISPRO [Suspect]
     Dosage: UNK UNK, TID
     Route: 064
  4. HUMALOG LISPRO [Suspect]
     Dosage: UNK UNK, TID
     Route: 064
  5. HUMALOG LISPRO [Suspect]
     Dosage: UNK UNK, TID
     Route: 064
  6. HUMALOG LISPRO [Suspect]
     Dosage: UNK UNK, TID
     Route: 064
  7. INSULIN [Concomitant]
     Indication: DIABETES COMPLICATING PREGNANCY
     Dosage: 18 IU, QD
     Route: 064
  8. INSULIN [Concomitant]
     Indication: DIABETES COMPLICATING PREGNANCY
     Dosage: 18 IU, QD
     Route: 064
  9. INSULIN [Concomitant]
     Dosage: 28 IU, QD
     Route: 064
  10. INSULIN [Concomitant]
     Dosage: 28 IU, QD
     Route: 064

REACTIONS (2)
  - Foetal growth restriction [Unknown]
  - Foetal exposure during pregnancy [Recovered/Resolved]
